FAERS Safety Report 17887620 (Version 3)
Quarter: 2021Q4

REPORT INFORMATION
  Report Type: Spontaneous
  Country: CA (occurrence: CA)
  Receive Date: 20200611
  Receipt Date: 20211209
  Transmission Date: 20220303
  Serious: Yes (Hospitalization, Other)
  Sender: FDA-Public Use
  Company Number: CA-BRISTOL-MYERS SQUIBB COMPANY-BMS-2020-043869

PATIENT
  Age: 75 Year
  Sex: Female

DRUGS (25)
  1. ORENCIA [Suspect]
     Active Substance: ABATACEPT
     Indication: Rheumatoid arthritis
     Dosage: 750 MILLIGRAM, QMO
     Route: 042
  2. ACTEMRA [Suspect]
     Active Substance: TOCILIZUMAB
     Indication: Rheumatoid arthritis
     Dosage: 488 MILLIGRAM, QMO
     Route: 042
  3. CELEBREX [Suspect]
     Active Substance: CELECOXIB
     Indication: Rheumatoid arthritis
     Dosage: UNK
     Route: 048
  4. ENBREL [Suspect]
     Active Substance: ETANERCEPT
     Indication: Rheumatoid arthritis
     Dosage: 50 MILLIGRAM, QWK
     Route: 065
  5. FENTANYL [Suspect]
     Active Substance: FENTANYL
     Indication: Product used for unknown indication
     Dosage: UNK
     Route: 065
  6. GABAPENTIN [Suspect]
     Active Substance: GABAPENTIN
     Indication: Product used for unknown indication
     Dosage: 100 MILLIGRAM, Q2WK
     Route: 048
  7. GABAPENTIN [Suspect]
     Active Substance: GABAPENTIN
     Dosage: 100 MILLIGRAM, 1 EVERY 2 DAYS
     Route: 048
  8. METHOTREXATE [Suspect]
     Active Substance: METHOTREXATE
     Indication: Rheumatoid arthritis
     Dosage: 1 DOSAGE FORM, QWK
     Route: 058
  9. METHOTREXATE [Suspect]
     Active Substance: METHOTREXATE
     Dosage: UNK
     Route: 058
  10. MYOCHRYSINE [Suspect]
     Active Substance: GOLD SODIUM THIOMALATE
     Indication: Product used for unknown indication
     Dosage: 50 MILLIGRAM, Q3WK
     Route: 030
  11. OXYCONTIN [Suspect]
     Active Substance: OXYCODONE HYDROCHLORIDE
     Indication: Product used for unknown indication
     Dosage: 750 MILLIGRAM, QMO
     Route: 065
  12. OXYCONTIN [Suspect]
     Active Substance: OXYCODONE HYDROCHLORIDE
     Dosage: UNK
     Route: 065
  13. SULFASALAZINE [Suspect]
     Active Substance: SULFASALAZINE
     Indication: Rheumatoid arthritis
     Dosage: 2.5 MILLIGRAM, QD
     Route: 065
  14. SULFASALAZINE [Suspect]
     Active Substance: SULFASALAZINE
     Dosage: 2.5 GRAM, QD
     Route: 048
  15. HYDROXYCHLOROQUINE SULFATE [Suspect]
     Active Substance: HYDROXYCHLOROQUINE SULFATE
     Indication: Product used for unknown indication
     Dosage: 400 MILLIGRAM, QD
     Route: 065
  16. NASONEX [Concomitant]
     Active Substance: MOMETASONE FUROATE
     Indication: Product used for unknown indication
     Dosage: UNK UNK, BID
     Route: 065
  17. NASONEX [Concomitant]
     Active Substance: MOMETASONE FUROATE
     Dosage: 2 DOSAGE FORM, BID
     Route: 065
  18. PREDNISONE [Concomitant]
     Active Substance: PREDNISONE
     Indication: Product used for unknown indication
     Dosage: 5 MILLIGRAM, QD
     Route: 065
  19. TRAZODONE [Concomitant]
     Active Substance: TRAZODONE HYDROCHLORIDE
     Indication: Product used for unknown indication
     Dosage: 1000 MILLIGRAM, QD
     Route: 065
  20. TYLENOL [Concomitant]
     Active Substance: ACETAMINOPHEN
     Indication: Product used for unknown indication
     Dosage: 1000 MILLIGRAM, 1 EVERY 1 DAY
     Route: 065
  21. TYLENOL [Concomitant]
     Active Substance: ACETAMINOPHEN
     Dosage: 1000 MILLIGRAM, 1 EVERY 1 DAY
     Route: 048
  22. ZOLEDRONIC ACID [Concomitant]
     Active Substance: ZOLEDRONIC ACID
     Indication: Product used for unknown indication
     Dosage: UNK
     Route: 065
  23. ACLASTA [Concomitant]
     Active Substance: ZOLEDRONIC ACID
     Indication: Rheumatoid arthritis
     Dosage: 488 MILLIGRAM, QMO, SOLUTION INTRAVENUS
     Route: 042
  24. ACLASTA [Concomitant]
     Active Substance: ZOLEDRONIC ACID
     Dosage: 750 MILLIGRAM, 1 EVERY 2 WEEKS, SOLUTION FOR INFUSION
     Route: 042
  25. TRAZODONE HYDROCHLORIDE [Concomitant]
     Active Substance: TRAZODONE HYDROCHLORIDE
     Indication: Product used for unknown indication
     Dosage: 50 MILLIGRAM
     Route: 048

REACTIONS (24)
  - Blood creatinine increased [Unknown]
  - Blood magnesium increased [Unknown]
  - Blood potassium increased [Unknown]
  - Cyst [Unknown]
  - Deafness neurosensory [Unknown]
  - Diarrhoea [Unknown]
  - Drug ineffective [Unknown]
  - Drug intolerance [Unknown]
  - Dry eye [Unknown]
  - Epigastric discomfort [Unknown]
  - Fatigue [Unknown]
  - Gastrointestinal disorder [Unknown]
  - Infection [Unknown]
  - Nausea [Unknown]
  - Osteoarthritis [Unknown]
  - Osteopenia [Unknown]
  - Pleural fibrosis [Unknown]
  - Pleural thickening [Unknown]
  - Presbyacusis [Unknown]
  - Renal impairment [Unknown]
  - Skin lesion [Unknown]
  - Sleep disorder [Unknown]
  - Treatment failure [Unknown]
  - Drug hypersensitivity [Unknown]
